FAERS Safety Report 8184731-6 (Version None)
Quarter: 2012Q1

REPORT INFORMATION
  Report Type: 
  Country: None (occurrence: None)
  Receive Date: 20120210
  Receipt Date: 20110623
  Transmission Date: 20120608
  Serious: Yes (Death)
  Sender: FDA-Public Use
  Company Number: DAV-AE-MTX-11-038

PATIENT
  Sex: Female
  Weight: 74 kg

DRUGS (3)
  1. HYDROXYCHLOROQUINE SULFATE [Concomitant]
  2. LEFLUNOMIDE [Concomitant]
  3. METHOTREXATE [Suspect]
     Indication: RHEUMATOID ARTHRITIS
     Dosage: 7.5MG
     Dates: start: 20010101

REACTIONS (1)
  - DRUG INEFFECTIVE [None]
